FAERS Safety Report 5775196-X (Version None)
Quarter: 2008Q2

REPORT INFORMATION
  Report Type: 
  Country: None (occurrence: None)
  Receive Date: 20080617
  Receipt Date: 20080613
  Transmission Date: 20081010
  Serious: Yes (Death)
  Sender: FDA-Public Use
  Company Number: A0733240A

PATIENT
  Age: 72 Year
  Sex: Male

DRUGS (1)
  1. SERETIDE [Suspect]
     Indication: DRUG USE FOR UNKNOWN INDICATION
     Dates: start: 20080201, end: 20080501

REACTIONS (2)
  - EMPHYSEMA [None]
  - PNEUMONIA [None]
